FAERS Safety Report 6082188-2 (Version None)
Quarter: 2009Q1

REPORT INFORMATION
  Report Type: 
  Country: None (occurrence: None)
  Receive Date: 20090218
  Receipt Date: 20090216
  Transmission Date: 20090719
  Serious: Yes (Other)
  Sender: FDA-Public Use
  Company Number: A0768697A

PATIENT
  Age: 39 Year
  Sex: Male

DRUGS (1)
  1. VALTREX [Suspect]
     Indication: GENITAL HERPES
     Dosage: 500MG PER DAY
     Route: 048
     Dates: start: 20080601

REACTIONS (5)
  - FACIAL PAIN [None]
  - LIP PAIN [None]
  - NEUROPATHY PERIPHERAL [None]
  - ORAL PAIN [None]
  - OROPHARYNGEAL BLISTERING [None]
